FAERS Safety Report 4264791-5 (Version None)
Quarter: 2004Q1

REPORT INFORMATION
  Report Type: 
  Country: None (occurrence: None)
  Receive Date: 20040105
  Receipt Date: 20031202
  Transmission Date: 20041129
  Serious: Yes (Other)
  Sender: FDA-Public Use
  Company Number: 03C331

PATIENT
  Sex: Female

DRUGS (1)
  1. SWIM EAR (95% ISOPROPYL ALCOHOL) [Suspect]
     Indication: EAR DISORDER

REACTIONS (2)
  - BURNING SENSATION [None]
  - DRUG INEFFECTIVE [None]
